FAERS Safety Report 14424289 (Version 1)
Quarter: 2018Q1

REPORT INFORMATION
  Report Type: Spontaneous
  Country: US (occurrence: US)
  Receive Date: 20180122
  Receipt Date: 20180122
  Transmission Date: 20180509
  Serious: No
  Sender: FDA-Public Use
  Company Number: None

PATIENT
  Age: 47 Year
  Sex: Female

DRUGS (1)
  1. CAPECITABINE. [Suspect]
     Active Substance: CAPECITABINE

REACTIONS (8)
  - Nausea [None]
  - Vomiting [None]
  - Weight increased [None]
  - Hot flush [None]
  - Fatigue [None]
  - Depression [None]
  - Hyperhidrosis [None]
  - Weight decreased [None]

NARRATIVE: CASE EVENT DATE: 20180122
